FAERS Safety Report 13118125 (Version 2)
Quarter: 2017Q2

REPORT INFORMATION
  Report Type: Spontaneous
  Country: US (occurrence: US)
  Receive Date: 20170116
  Receipt Date: 20170406
  Transmission Date: 20170830
  Serious: No
  Sender: FDA-Public Use
  Company Number: US-JNJFOC-20161203260

PATIENT
  Sex: Female

DRUGS (2)
  1. RISPERDAL M-TAB [Suspect]
     Active Substance: RISPERIDONE
     Indication: AUTISM SPECTRUM DISORDER
     Route: 048
     Dates: start: 201607
  2. RISPERDAL M-TAB [Suspect]
     Active Substance: RISPERIDONE
     Indication: AUTISM SPECTRUM DISORDER
     Route: 048
     Dates: start: 2011, end: 201607

REACTIONS (10)
  - Gait disturbance [Unknown]
  - Weight decreased [Recovered/Resolved]
  - Weight increased [Not Recovered/Not Resolved]
  - Dizziness [Unknown]
  - Logorrhoea [Not Recovered/Not Resolved]
  - Flight of ideas [Not Recovered/Not Resolved]
  - Drug dose omission [Unknown]
  - Dysphonia [Not Recovered/Not Resolved]
  - Balance disorder [Unknown]
  - Product use issue [Unknown]

NARRATIVE: CASE EVENT DATE: 2011
